FAERS Safety Report 4439827-9 (Version None)
Quarter: 2004Q3

REPORT INFORMATION
  Report Type: 
  Country: None (occurrence: None)
  Receive Date: 20040831
  Receipt Date: 20040824
  Transmission Date: 20050211
  Serious: Yes (Hospitalization)
  Sender: FDA-Public Use
  Company Number: K200401291

PATIENT
  Age: 57 Year
  Sex: Male

DRUGS (3)
  1. ALTACE [Suspect]
     Indication: HYPERTENSION
     Dosage: SEE IMAGE, ORAL
     Route: 048
     Dates: start: 20010101, end: 20040810
  2. ALTACE [Suspect]
     Indication: HYPERTENSION
     Dosage: SEE IMAGE, ORAL
     Route: 048
     Dates: start: 20040811
  3. SEPTANES (EPINEPHRINE BITARTRATE, ARTICAINE HYDROCHLORIDE) INJECTION [Suspect]
     Dosage: 4% ARTICAIN 1/120,000 EPINEPHRINE
     Dates: start: 20040810, end: 20040810

REACTIONS (4)
  - BLOOD PRESSURE INCREASED [None]
  - CHEST PAIN [None]
  - DRUG INEFFECTIVE [None]
  - DRUG INTERACTION [None]
